FAERS Safety Report 15036640 (Version 2)
Quarter: 2018Q2

REPORT INFORMATION
  Report Type: Spontaneous
  Country: US (occurrence: US)
  Receive Date: 20180620
  Receipt Date: 20180621
  Transmission Date: 20180711
  Serious: No
  Sender: FDA-Public Use
  Company Number: US-PFIZER INC-2018248320

PATIENT
  Age: 73 Year
  Sex: Female
  Weight: 124 kg

DRUGS (1)
  1. EXEMESTANE. [Suspect]
     Active Substance: EXEMESTANE
     Indication: INFLAMMATORY CARCINOMA OF THE BREAST
     Dosage: 25 MG, 1X/DAY
     Route: 048
     Dates: start: 201706

REACTIONS (2)
  - Arthralgia [Recovered/Resolved]
  - Polyuria [Not Recovered/Not Resolved]
